FAERS Safety Report 16876820 (Version 3)
Quarter: 2019Q4

REPORT INFORMATION
  Report Type: Report from Study
  Country: DE (occurrence: DE)
  Receive Date: 20191002
  Receipt Date: 20191223
  Transmission Date: 20200122
  Serious: Yes (Death, Life-Threatening, Hospitalization, Other)
  Sender: FDA-Public Use
  Company Number: DE-ACCORD-156167

PATIENT
  Age: 69 Year
  Sex: Male
  Weight: 82 kg

DRUGS (15)
  1. ACC [Concomitant]
     Active Substance: ACETYLCYSTEINE
     Indication: PRODUCT USED FOR UNKNOWN INDICATION
     Dosage: 600 MG, DAILY
     Route: 048
     Dates: start: 2019
  2. PEMBROLIZUMAB. [Interacting]
     Active Substance: PEMBROLIZUMAB
     Indication: ADENOCARCINOMA OF COLON
     Dosage: 200 MG
     Route: 042
     Dates: start: 20190903, end: 20190903
  3. BEROTEC [Concomitant]
     Active Substance: FENOTEROL HYDROBROMIDE
     Indication: PRODUCT USED FOR UNKNOWN INDICATION
     Dosage: 100 UG, PRN
     Route: 055
  4. PEMETREXED. [Interacting]
     Active Substance: PEMETREXED
     Indication: ADENOCARCINOMA OF COLON
     Dosage: 995 MG
     Route: 042
     Dates: start: 20190903, end: 20190903
  5. CYANOCOBALAMIN. [Concomitant]
     Active Substance: CYANOCOBALAMIN
     Indication: PRODUCT USED FOR UNKNOWN INDICATION
     Dosage: 1000 UG, OTHER (ONCE EVERY 9 WEEKS)
     Route: 030
     Dates: start: 2019, end: 20190903
  6. VIANI [Concomitant]
     Active Substance: FLUTICASONE PROPIONATE\SALMETEROL XINAFOATE
     Indication: PRODUCT USED FOR UNKNOWN INDICATION
     Dosage: 50/250UG, DAILY
     Route: 055
  7. CALCIUM VERLA D [Concomitant]
     Indication: PRODUCT USED FOR UNKNOWN INDICATION
     Dosage: 600 MG, BID
     Route: 048
     Dates: start: 2019
  8. PANTOPRAZOLE [Concomitant]
     Active Substance: PANTOPRAZOLE
     Indication: PRODUCT USED FOR UNKNOWN INDICATION
     Dosage: 200 MG, PRN
     Route: 048
     Dates: start: 2019
  9. FERROSANOL [Concomitant]
     Active Substance: FERROUS GLUCONATE
     Indication: PRODUCT USED FOR UNKNOWN INDICATION
     Dosage: 100 MG, DAILY
     Route: 048
     Dates: start: 2019
  10. CALCIUM CARBONATE. [Concomitant]
     Active Substance: CALCIUM CARBONATE
     Dosage: 1200 MG, QD (600 MG, BID)
     Route: 048
     Dates: start: 2019
  11. LEVOTHYROXINE. [Concomitant]
     Active Substance: LEVOTHYROXINE
     Indication: PRODUCT USED FOR UNKNOWN INDICATION
     Dosage: 175 UG, DAILY
     Route: 048
  12. UMECLIDINIUM [Concomitant]
     Active Substance: UMECLIDINIUM BROMIDE
     Indication: PRODUCT USED FOR UNKNOWN INDICATION
     Dosage: 55 UG, DAILY
     Route: 055
  13. CARBOPLATIN. [Suspect]
     Active Substance: CARBOPLATIN
     Indication: ADENOCARCINOMA OF COLON
     Dosage: 442.6 MG
     Route: 042
     Dates: start: 20190903, end: 20190903
  14. FOLVERLAN [Concomitant]
     Active Substance: FOLIC ACID
     Indication: PRODUCT USED FOR UNKNOWN INDICATION
     Dosage: 400 UG, DAILY
     Route: 048
     Dates: start: 2019
  15. CARBOPLATIN. [Interacting]
     Active Substance: CARBOPLATIN
     Indication: NON-SMALL CELL LUNG CANCER
     Dosage: 422.5 MG, UNKNOWN
     Route: 042
     Dates: start: 20190903, end: 20190903

REACTIONS (13)
  - Drug interaction [Unknown]
  - Acinetobacter infection [Fatal]
  - Thrombocytopenia [Unknown]
  - Acute kidney injury [Unknown]
  - Prerenal failure [Fatal]
  - Diarrhoea [Recovered/Resolved]
  - Hypophagia [Unknown]
  - Nausea [Unknown]
  - Dehydration [Unknown]
  - Sepsis [Fatal]
  - Vomiting [Recovering/Resolving]
  - Neutropenia [Fatal]
  - Leukopenia [Fatal]

NARRATIVE: CASE EVENT DATE: 20190904
